FAERS Safety Report 19130065 (Version 1)
Quarter: 2021Q2

REPORT INFORMATION
  Report Type: Spontaneous
  Country: US (occurrence: US)
  Receive Date: 20210413
  Receipt Date: 20210413
  Transmission Date: 20210717
  Serious: No
  Sender: FDA-Public Use
  Company Number: US-STEMLINE THERAPEUTICS, INC.-2021ST000001

PATIENT

DRUGS (2)
  1. MORPHINE [Concomitant]
     Active Substance: MORPHINE
     Indication: PAIN
     Dosage: WITH EACH ELZONRIS INFUSION
     Route: 065
  2. ELZONRIS [Suspect]
     Active Substance: TAGRAXOFUSP-ERZS
     Indication: PRODUCT USED FOR UNKNOWN INDICATION
     Route: 042

REACTIONS (2)
  - Chest pain [Unknown]
  - Back pain [Unknown]
